FAERS Safety Report 14706239 (Version 2)
Quarter: 2020Q2

REPORT INFORMATION
  Report Type: Spontaneous
  Country: US (occurrence: US)
  Receive Date: 20180402
  Receipt Date: 20200519
  Transmission Date: 20200713
  Serious: Yes (Death, Other)
  Sender: FDA-Public Use
  Company Number: US-009507513-1804USA000459

PATIENT
  Sex: Female

DRUGS (2)
  1. JANUVIA [Suspect]
     Active Substance: SITAGLIPTIN PHOSPHATE
     Indication: DIABETES MELLITUS
     Dosage: 1 TABLET, EVERY DAY
     Route: 048
     Dates: start: 20120708, end: 201605
  2. JANUVIA [Suspect]
     Active Substance: SITAGLIPTIN PHOSPHATE
     Dosage: 1 TABLET, EVERY DAY
     Route: 048

REACTIONS (10)
  - Pancreatic carcinoma [Fatal]
  - Chronic gastritis [Unknown]
  - Oedema peripheral [Unknown]
  - Pancreatic cyst [Unknown]
  - Internal haemorrhage [Unknown]
  - Mammogram [Unknown]
  - Abdominal pain lower [Unknown]
  - Anaemia [Unknown]
  - Drug ineffective [Unknown]
  - Pancreatitis [Recovering/Resolving]

NARRATIVE: CASE EVENT DATE: 2015
